FAERS Safety Report 10042797 (Version 2)
Quarter: 2014Q2

REPORT INFORMATION
  Report Type: Spontaneous
  Country: US (occurrence: US)
  Receive Date: 20140327
  Receipt Date: 20140617
  Transmission Date: 20141212
  Serious: Yes (Hospitalization)
  Sender: FDA-Public Use
  Company Number: US-GILEAD-2014-0097907

PATIENT
  Age: 71 Year
  Sex: Female

DRUGS (3)
  1. LETAIRIS [Suspect]
     Indication: PULMONARY ARTERIAL HYPERTENSION
     Dosage: 10 MG, UNK
     Route: 065
     Dates: start: 20100728
  2. WARFARIN [Concomitant]
  3. LEVOTHYROX [Concomitant]

REACTIONS (2)
  - Ulcer haemorrhage [Recovered/Resolved]
  - Dyspnoea [Unknown]
